FAERS Safety Report 4901408-8 (Version None)
Quarter: 2006Q1

REPORT INFORMATION
  Report Type: 
  Country: None (occurrence: None)
  Receive Date: 20060202
  Receipt Date: 20060124
  Transmission Date: 20060701
  Serious: Yes (Death, Hospitalization)
  Sender: FDA-Public Use
  Company Number: 163-20785-05120509

PATIENT
  Age: 66 Year
  Sex: Female

DRUGS (11)
  1. THALOMID [Suspect]
     Indication: MULTIPLE MYELOMA
     Dosage: 100 MG, DAILY, ORAL
     Route: 048
     Dates: start: 20050217, end: 20050501
  2. DARVOCET-N (PROPACET) [Concomitant]
  3. SYNTHROID [Suspect]
  4. TOPROL-XL [Concomitant]
  5. DURAGESIC  (FENTANYL) (POULTICE OR PATCH) [Concomitant]
  6. NEURONTIN [Concomitant]
  7. LASIX [Concomitant]
  8. K-DUR 10 [Concomitant]
  9. LEXAPRO [Concomitant]
  10. ULTRAM [Concomitant]
  11. MUCOMYST [Concomitant]

REACTIONS (7)
  - DEPRESSED LEVEL OF CONSCIOUSNESS [None]
  - DYSPNOEA [None]
  - FIBRIN D DIMER INCREASED [None]
  - PNEUMONIA [None]
  - PYREXIA [None]
  - THERAPY NON-RESPONDER [None]
  - TROPONIN I INCREASED [None]
